FAERS Safety Report 18577029 (Version 1)
Quarter: 2020Q4

REPORT INFORMATION
  Report Type: Spontaneous
  Country: US (occurrence: US)
  Receive Date: 20201203
  Receipt Date: 20201203
  Transmission Date: 20210114
  Serious: Yes (Death, Other)
  Sender: FDA-Public Use
  Company Number: US-PURDUE-USA-2020-0174553

PATIENT
  Age: 69 Year
  Sex: Female

DRUGS (7)
  1. OXYCODONE HCL TABLETS (RHODES 91-490) [Suspect]
     Active Substance: OXYCODONE HYDROCHLORIDE
     Indication: PAIN
     Dosage: UNK
     Route: 048
  2. OXYCODONE HYDROCHLORIDE (SIMILAR TO NDA 22-272) [Suspect]
     Active Substance: OXYCODONE HYDROCHLORIDE
     Indication: PAIN
     Dosage: UNK
     Route: 048
  3. HYDROCODONE BITARTRATE/ACETAMINOPHEN [Suspect]
     Active Substance: ACETAMINOPHEN\HYDROCODONE BITARTRATE
     Indication: PRODUCT USED FOR UNKNOWN INDICATION
     Dosage: UNK
     Route: 048
  4. OXYCODONE HCL CR TABLETS (SIMILAR TO NDA 22-272) [Suspect]
     Active Substance: OXYCODONE HYDROCHLORIDE
     Indication: PAIN
     Dosage: UNK
     Route: 048
  5. TRAMADOL. [Suspect]
     Active Substance: TRAMADOL
     Indication: PRODUCT USED FOR UNKNOWN INDICATION
     Dosage: UNK
     Route: 065
  6. OXYCONTIN [Suspect]
     Active Substance: OXYCODONE HYDROCHLORIDE
     Indication: ANALGESIC THERAPY
     Dosage: UNK
     Route: 048
  7. OXYIR [Suspect]
     Active Substance: OXYCODONE HYDROCHLORIDE
     Indication: PRODUCT USED FOR UNKNOWN INDICATION
     Dosage: UNK
     Route: 048

REACTIONS (25)
  - Cardiac arrest [Fatal]
  - Abscess [Unknown]
  - Dyspnoea [Unknown]
  - Confusional state [Unknown]
  - Gait disturbance [Unknown]
  - Constipation [Unknown]
  - Lower limb fracture [Unknown]
  - Blood pressure increased [Unknown]
  - Back pain [Unknown]
  - Renal impairment [Unknown]
  - Spinal cord injury [Unknown]
  - Spinal operation [Recovered/Resolved]
  - Gastric dilatation [Unknown]
  - Urinary retention [Unknown]
  - Intervertebral discitis [Unknown]
  - Fall [Unknown]
  - Diarrhoea [Unknown]
  - Drug dependence [Unknown]
  - Dialysis [Unknown]
  - Dizziness [Unknown]
  - Somnolence [Unknown]
  - Amnesia [Unknown]
  - Osteomyelitis [Unknown]
  - Sleep disorder [Unknown]
  - Pain [Unknown]

NARRATIVE: CASE EVENT DATE: 2015
